FAERS Safety Report 6580436-3 (Version None)
Quarter: 2010Q1

REPORT INFORMATION
  Report Type: 
  Country: None (occurrence: None)
  Receive Date: 20100212
  Receipt Date: 20100205
  Transmission Date: 20100710
  Serious: Yes (Hospitalization, Other)
  Sender: FDA-Public Use
  Company Number: PHHY2010CN06234

PATIENT

DRUGS (3)
  1. SEBIVO [Suspect]
     Indication: HEPATITIS B
     Dosage: 600 MG, DAILY
     Dates: start: 20090501
  2. ADEFOVIR DIPIVOXIL KIT [Concomitant]
  3. LAMIVUDINE [Concomitant]

REACTIONS (16)
  - ASTHENIA [None]
  - BLOOD CREATINE PHOSPHOKINASE ABNORMAL [None]
  - BLOOD URIC ACID INCREASED [None]
  - CARDIOMYOPATHY [None]
  - DYSSTASIA [None]
  - FATIGUE [None]
  - GAIT DISTURBANCE [None]
  - LACTIC ACIDOSIS [None]
  - METABOLIC ACIDOSIS [None]
  - MUSCULAR WEAKNESS [None]
  - MYALGIA [None]
  - MYOPATHY [None]
  - OEDEMA PERIPHERAL [None]
  - PALPITATIONS [None]
  - RHABDOMYOLYSIS [None]
  - SINUS TACHYCARDIA [None]
